FAERS Safety Report 8176750-0 (Version None)
Quarter: 2012Q1

REPORT INFORMATION
  Report Type: 
  Country: None (occurrence: None)
  Receive Date: 20120228
  Receipt Date: 20120216
  Transmission Date: 20120608
  Serious: Yes (Other)
  Sender: FDA-Public Use
  Company Number: 2012MA002368

PATIENT

DRUGS (1)
  1. CITALOPRAM HYDROBROMIDE [Suspect]
     Indication: ANTIDEPRESSANT THERAPY
     Dosage: 40 MG;QD;PO
     Route: 048
     Dates: start: 20120117

REACTIONS (2)
  - CONDITION AGGRAVATED [None]
  - PRODUCT QUALITY ISSUE [None]
